FAERS Safety Report 7141245-X (Version None)
Quarter: 2010Q4

REPORT INFORMATION
  Report Type: 
  Country: None (occurrence: None)
  Receive Date: 20101207
  Receipt Date: 20101125
  Transmission Date: 20110411
  Serious: Yes (Hospitalization)
  Sender: FDA-Public Use
  Company Number: FR-BRISTOL-MYERS SQUIBB COMPANY-15415573

PATIENT
  Age: 73 Year
  Sex: Female

DRUGS (4)
  1. LYSODREN [Suspect]
     Indication: ADRENOCORTICAL CARCINOMA
     Dosage: 3 TABLET
     Route: 048
     Dates: start: 20101014, end: 20101105
  2. HYDROCORTISONE [Concomitant]
     Indication: ADRENAL INSUFFICIENCY
     Route: 048
     Dates: start: 20100624
  3. ORACILLINE [Concomitant]
     Indication: ANTIBIOTIC PROPHYLAXIS
     Route: 048
     Dates: start: 20100624, end: 20101104
  4. CACIT D3 [Concomitant]
     Indication: VITAMIN SUPPLEMENTATION
     Route: 048
     Dates: start: 20100624

REACTIONS (15)
  - ADRENAL INSUFFICIENCY [None]
  - ANAEMIA [None]
  - ASTHENIA [None]
  - COGNITIVE DISORDER [None]
  - DECREASED APPETITE [None]
  - DERMATITIS [None]
  - DISORIENTATION [None]
  - DRUG ERUPTION [None]
  - HYPONATRAEMIA [None]
  - MALAISE [None]
  - MELANODERMIA [None]
  - MYALGIA [None]
  - PAPULE [None]
  - PURPURA [None]
  - RENAL FAILURE [None]
